FAERS Safety Report 19712932 (Version 1)
Quarter: 2021Q3

REPORT INFORMATION
  Report Type: Spontaneous
  Country: US (occurrence: US)
  Receive Date: 20210817
  Receipt Date: 20210817
  Transmission Date: 20211014
  Serious: No
  Sender: FDA-Public Use
  Company Number: US-JAZZ-JPI-P-011435

PATIENT
  Sex: Female
  Weight: 71.82 kg

DRUGS (7)
  1. ESTRADIOL. [Concomitant]
     Active Substance: ESTRADIOL
  2. LUBIPROSTONE [Concomitant]
     Active Substance: LUBIPROSTONE
  3. DULOXETINE. [Concomitant]
     Active Substance: DULOXETINE
  4. OMEPRAZOLE. [Concomitant]
     Active Substance: OMEPRAZOLE
  5. XYREM [Suspect]
     Active Substance: SODIUM OXYBATE
     Dosage: 4.5 GRAM, BID
     Route: 048
  6. PREGABALIN. [Concomitant]
     Active Substance: PREGABALIN
  7. XYREM [Suspect]
     Active Substance: SODIUM OXYBATE
     Indication: NARCOLEPSY
     Dosage: UNK UNK, BID
     Route: 048
     Dates: start: 200909

REACTIONS (2)
  - Condition aggravated [Recovered/Resolved]
  - Alopecia [Recovered/Resolved]

NARRATIVE: CASE EVENT DATE: 2010
